FAERS Safety Report 9214082 (Version 1)
Quarter: 2013Q2

REPORT INFORMATION
  Report Type: Spontaneous
  Country: US (occurrence: None)
  Receive Date: 20130404
  Receipt Date: 20130404
  Transmission Date: 20140414
  Serious: No
  Sender: FDA-Public Use
  Company Number: None

PATIENT
  Age: 62 Year
  Sex: Female

DRUGS (8)
  1. REVLIMID [Suspect]
     Indication: PLASMA CELL MYELOMA
     Dosage: DAILY X14D/21D
     Route: 048
     Dates: start: 201301
  2. CELEBREX [Concomitant]
  3. ONDANSETRON [Concomitant]
  4. METHADONE [Concomitant]
  5. LOVAZA [Concomitant]
  6. LEVOTHYROXINE [Concomitant]
  7. LISINOPRIL/HCTZ [Concomitant]
  8. OMEPRAZOLE [Concomitant]

REACTIONS (1)
  - Neutropenia [None]
